FAERS Safety Report 8408745-3 (Version None)
Quarter: 2012Q2

REPORT INFORMATION
  Report Type: 
  Country: None (occurrence: None)
  Receive Date: 20120604
  Receipt Date: 20120523
  Transmission Date: 20120825
  Serious: Yes (Hospitalization, Other)
  Sender: FDA-Public Use
  Company Number: US-ACTELION-A-NJ2011-54256

PATIENT

DRUGS (18)
  1. EPOPROSTENOL SODIUM [Suspect]
     Indication: PULMONARY ARTERIAL HYPERTENSION
     Dosage: 20 NG/KG, PER MIN
     Route: 041
     Dates: start: 20101028
  2. PHENERGAN [Concomitant]
  3. ADVAIR DISKUS 100/50 [Concomitant]
  4. FLEXERIL [Concomitant]
  5. OXYGEN [Concomitant]
  6. BENADRYL [Concomitant]
  7. NEXIUM [Concomitant]
  8. LASIX [Concomitant]
  9. KLOR-CON [Concomitant]
  10. TRACLEER [Suspect]
     Indication: PULMONARY ARTERIAL HYPERTENSION
     Dosage: UNK
     Route: 048
     Dates: start: 20090115, end: 20110603
  11. SILDENAFIL [Concomitant]
  12. COMBIVENT [Concomitant]
  13. CELEXA [Concomitant]
  14. ZANTAC [Concomitant]
  15. LORTAB [Concomitant]
  16. TRACLEER [Suspect]
     Dosage: UNK
     Route: 048
  17. SPIRIVA [Concomitant]
  18. NORVASC [Concomitant]

REACTIONS (9)
  - CATHETER SITE INFECTION [None]
  - CATHETER SITE ERYTHEMA [None]
  - CATHETER SITE PAIN [None]
  - BURSITIS [None]
  - STAPHYLOCOCCAL INFECTION [None]
  - CATHETER SITE SWELLING [None]
  - CATHETER SITE PRURITUS [None]
  - HEADACHE [None]
  - DEVICE RELATED INFECTION [None]
